FAERS Safety Report 16169580 (Version 1)
Quarter: 2019Q2

REPORT INFORMATION
  Report Type: Spontaneous
  Country: US (occurrence: US)
  Receive Date: 20190407
  Receipt Date: 20190407
  Transmission Date: 20190711
  Serious: Yes (Hospitalization)
  Sender: FDA-Public Use
  Company Number: None

PATIENT
  Age: 30 Year
  Sex: Female
  Weight: 57.15 kg

DRUGS (2)
  1. PLAQUENIL [Suspect]
     Active Substance: HYDROXYCHLOROQUINE SULFATE
     Indication: PALINDROMIC RHEUMATISM
     Dosage: ?          QUANTITY:1.5 TABLET(S);?
     Route: 048
     Dates: start: 20180228, end: 20190106
  2. PLAQUENIL [Suspect]
     Active Substance: HYDROXYCHLOROQUINE SULFATE
     Indication: ARTHRALGIA
     Dosage: ?          QUANTITY:1.5 TABLET(S);?
     Route: 048
     Dates: start: 20180228, end: 20190106

REACTIONS (6)
  - Suicidal ideation [None]
  - Condition aggravated [None]
  - Vision blurred [None]
  - Depressed mood [None]
  - Diarrhoea [None]
  - Mood altered [None]

NARRATIVE: CASE EVENT DATE: 20190106
